FAERS Safety Report 14342174 (Version 1)
Quarter: 2018Q1

REPORT INFORMATION
  Report Type: Spontaneous
  Country: US (occurrence: US)
  Receive Date: 20180102
  Receipt Date: 20180102
  Transmission Date: 20180509
  Serious: No
  Sender: FDA-Public Use
  Company Number: US-TEVA-754837ACC

PATIENT
  Sex: Female

DRUGS (2)
  1. DULOXETINE. [Suspect]
     Active Substance: DULOXETINE
     Indication: DEPRESSION
     Dosage: 60 MILLIGRAM DAILY;
     Route: 065
  2. DULOXETINE. [Suspect]
     Active Substance: DULOXETINE
     Dosage: 30 MILLIGRAM DAILY;
     Route: 065

REACTIONS (7)
  - Anxiety [Unknown]
  - Nervousness [Unknown]
  - Anger [Unknown]
  - Hypoaesthesia oral [Unknown]
  - Feeling abnormal [Unknown]
  - Aggression [Unknown]
  - Intentional product use issue [Unknown]
